FAERS Safety Report 9056920 (Version 1)
Quarter: 2013Q1

REPORT INFORMATION
  Report Type: Spontaneous
  Country: CN (occurrence: TW)
  Receive Date: 20130201
  Receipt Date: 20130201
  Transmission Date: 20140127
  Serious: Yes (Other)
  Sender: FDA-Public Use
  Company Number: TW-B.I. PHARMACEUTICALS,INC./RIDGEFIELD-2013-BI-03037YA

PATIENT
  Age: 66 Year
  Sex: Male

DRUGS (4)
  1. TAMSULOSINA [Suspect]
     Indication: BENIGN PROSTATIC HYPERPLASIA
     Dosage: 0.2 MG
     Route: 048
  2. VESICARE (SOLIFENACIN) [Suspect]
     Indication: POLLAKIURIA
     Dosage: 5 MG
     Route: 048
  3. HYTRIN (TERAZOSIN HYDROCHLORIDE) [Concomitant]
  4. DITROPAN (OXYBUTYNIN HYDROCHLORIDE) [Concomitant]

REACTIONS (1)
  - Urinary retention [Not Recovered/Not Resolved]
